FAERS Safety Report 11012658 (Version 1)
Quarter: 2015Q2

REPORT INFORMATION
  Report Type: Spontaneous
  Country: US (occurrence: None)
  Receive Date: 20150409
  Receipt Date: 20150409
  Transmission Date: 20150821
  Serious: Yes (Other)
  Sender: FDA-Public Use
  Company Number: DEP_02614_2015

PATIENT
  Sex: Female

DRUGS (4)
  1. GRALISE [Suspect]
     Active Substance: GABAPENTIN
     Indication: OFF LABEL USE
     Dosage: TITRATED UP TO 1800 MG, ONCE DAILY ORAL
     Route: 048
     Dates: start: 20150211, end: 20150324
  2. GRALISE [Suspect]
     Active Substance: GABAPENTIN
     Indication: INTERVERTEBRAL DISC PROTRUSION
     Dosage: TITRATED UP TO 1800 MG, ONCE DAILY ORAL
     Route: 048
     Dates: start: 20150211, end: 20150324
  3. BUTRANS [Suspect]
     Active Substance: BUPRENORPHINE
     Indication: PRODUCT USED FOR UNKNOWN INDICATION
     Dosage: PATCH
     Dates: start: 20150321
  4. CYMBALTA [Concomitant]
     Active Substance: DULOXETINE HYDROCHLORIDE

REACTIONS (6)
  - Unresponsive to stimuli [None]
  - Nausea [None]
  - Dizziness [None]
  - Gastroenteritis viral [None]
  - Hyperhidrosis [None]
  - Hypersensitivity [None]

NARRATIVE: CASE EVENT DATE: 20150321
